FAERS Safety Report 8614489-5 (Version None)
Quarter: 2012Q3

REPORT INFORMATION
  Report Type: 
  Country: None (occurrence: None)
  Receive Date: 20120823
  Receipt Date: 20120818
  Transmission Date: 20120928
  Serious: Yes (Death, Hospitalization)
  Sender: FDA-Public Use
  Company Number: PHHY2012IN071594

PATIENT
  Sex: Male

DRUGS (1)
  1. DEFERASIROX [Suspect]
     Indication: IRON OVERLOAD
     Dosage: 600 MG, UNK
     Route: 048
     Dates: start: 20120615

REACTIONS (5)
  - DEHYDRATION [None]
  - PYREXIA [None]
  - HYPOTENSION [None]
  - RENAL FAILURE [None]
  - OEDEMA PERIPHERAL [None]
